FAERS Safety Report 8589668-6 (Version None)
Quarter: 2012Q3

REPORT INFORMATION
  Report Type: 
  Country: None (occurrence: None)
  Receive Date: 20120813
  Receipt Date: 20120808
  Transmission Date: 20120928
  Serious: Yes (Hospitalization)
  Sender: FDA-Public Use
  Company Number: DE-ROCHE-1092884

PATIENT
  Sex: Male
  Weight: 59 kg

DRUGS (4)
  1. FLUOROURACIL [Suspect]
     Indication: RECTAL CANCER METASTATIC
     Dosage: DATE OF LAST DOSE PRIOR TO SAE: 12/JUN/2012
     Route: 042
     Dates: start: 20120327
  2. GRANISETRON HYDROCHLORIDE [Concomitant]
     Indication: PROPHYLAXIS OF NAUSEA AND VOMITING
     Dosage: DATE OF LAST DOSE PRIOR TO SAE: 12/JUN/2012
     Route: 042
     Dates: start: 20120327
  3. AVASTIN [Suspect]
     Indication: RECTAL CANCER METASTATIC
     Dosage: DATE OF LAST DOSE PRIOR TO SAE: 12/JUN/2012
     Route: 042
     Dates: start: 20120327
  4. LEUCOVORIN CALCIUM [Suspect]
     Indication: RECTAL CANCER METASTATIC
     Dosage: DATE OF LAST DOSE PRIOR TO SAE: 12/JUN/2012
     Route: 042
     Dates: start: 20120327

REACTIONS (6)
  - DEHYDRATION [None]
  - CIRCULATORY COLLAPSE [None]
  - GENERAL PHYSICAL HEALTH DETERIORATION [None]
  - HAEMORRHAGE [None]
  - ACUTE PRERENAL FAILURE [None]
  - HYPOTENSION [None]
